FAERS Safety Report 26154113 (Version 1)
Quarter: 2025Q4

REPORT INFORMATION
  Report Type: Spontaneous
  Country: US (occurrence: US)
  Receive Date: 20251215
  Receipt Date: 20251215
  Transmission Date: 20260117
  Serious: No
  Sender: TOLMAR
  Company Number: US-Tolmar-TLM-2025-09279

PATIENT

DRUGS (2)
  1. ELIGARD [Suspect]
     Active Substance: LEUPROLIDE ACETATE
     Indication: Prostate cancer
     Dosage: SN#: 8745510793597?NDC: 6293546150?GTIN: 00362935461500?EXPIRATION DATE: JAN-2027; FEB-2027; JAN-202
     Route: 065
  2. DEVICE [Suspect]
     Active Substance: DEVICE
     Indication: Prostate cancer
     Dosage: SN#: 8745510793597?NDC: 6293546150?GTIN: 00362935461500?EXPIRATION DATE: JAN-2027; FEB-2027; JAN-202

REACTIONS (3)
  - Feeling abnormal [Unknown]
  - Refusal of treatment by patient [Unknown]
  - Intentional dose omission [Unknown]
